FAERS Safety Report 8598324-X (Version None)
Quarter: 2012Q3

REPORT INFORMATION
  Report Type: 
  Country: None (occurrence: None)
  Receive Date: 20120806
  Receipt Date: 20120806
  Transmission Date: 20120928
  Serious: Yes (Other)
  Sender: FDA-Public Use
  Company Number: None

PATIENT
  Age: 35 Year
  Sex: Female
  Weight: 88.4514 kg

DRUGS (2)
  1. CYMBALTA [Suspect]
     Indication: DEPRESSION
     Dosage: 1 CAPSULE Q DAY PO
     Route: 048
     Dates: start: 20120802, end: 20120804
  2. CYMBALTA [Suspect]
     Indication: PAIN
     Dosage: 1 CAPSULE Q DAY PO
     Route: 048
     Dates: start: 20120802, end: 20120804

REACTIONS (4)
  - DYSPNOEA [None]
  - PYREXIA [None]
  - COUGH [None]
  - CHEST DISCOMFORT [None]
